FAERS Safety Report 6946224-0 (Version None)
Quarter: 2010Q3

REPORT INFORMATION
  Report Type: 
  Country: None (occurrence: None)
  Receive Date: 20100824
  Receipt Date: 20100817
  Transmission Date: 20110219
  Serious: Yes (Hospitalization, Disabling, Other)
  Sender: FDA-Public Use
  Company Number: 2010MA001872

PATIENT
  Age: 2 Month
  Sex: Female

DRUGS (14)
  1. PROMETHAZINE HCL [Suspect]
     Indication: SEDATION
     Dosage: 3 MG;PO
     Route: 048
     Dates: start: 20100727, end: 20100730
  2. FUROSEMIDE [Concomitant]
  3. COLISTIN SULFATE [Concomitant]
  4. DOMPERIDONE [Concomitant]
  5. POTASSIUM CHLORIDE [Concomitant]
  6. TOBRAMYCIN [Concomitant]
  7. CHLORAL HYDRATE [Concomitant]
  8. RANITIDINE [Concomitant]
  9. AMPHOTERICIN B [Concomitant]
  10. MORPHINE [Concomitant]
  11. MIDAZOLAM HCL [Concomitant]
  12. TRIMETHOPRIM [Concomitant]
  13. SODIUM CHLORIDE [Concomitant]
  14. PREV MEDS [Concomitant]

REACTIONS (1)
  - OCULOGYRIC CRISIS [None]
